FAERS Safety Report 19499771 (Version 1)
Quarter: 2021Q3

REPORT INFORMATION
  Report Type: Spontaneous
  Country: DE (occurrence: DE)
  Receive Date: 20210707
  Receipt Date: 20210707
  Transmission Date: 20211014
  Serious: Yes (Hospitalization)
  Sender: FDA-Public Use
  Company Number: DE-TEVA-2021-DE-1929906

PATIENT
  Age: 62 Year
  Sex: Male

DRUGS (3)
  1. CANDESARTAN. [Concomitant]
     Active Substance: CANDESARTAN
     Dosage: 8 MILLIGRAM DAILY; 1?0?0?0
     Route: 048
  2. BISOPROLOL [Suspect]
     Active Substance: BISOPROLOL
     Dosage: 1.25 MILLIGRAM DAILY;  1?0?0?0
     Route: 048
  3. OMEPRAZOL [Concomitant]
     Active Substance: OMEPRAZOLE
     Dosage: 20 MILLIGRAM DAILY; 1?0?0?0
     Route: 048

REACTIONS (3)
  - Palpitations [Unknown]
  - Dyspnoea [Unknown]
  - Ventricular extrasystoles [Unknown]
